FAERS Safety Report 8170250-X (Version None)
Quarter: 2012Q1

REPORT INFORMATION
  Report Type: 
  Country: None (occurrence: None)
  Receive Date: 20120228
  Receipt Date: 20120223
  Transmission Date: 20120608
  Serious: Yes (Death)
  Sender: FDA-Public Use
  Company Number: PHHY2012AR016195

PATIENT
  Sex: Female

DRUGS (1)
  1. EXELON [Suspect]
     Indication: DEMENTIA WITH LEWY BODIES
     Dosage: 9.5 MG, (PATCH 10 CM)DAILY
     Route: 062
     Dates: start: 20100101

REACTIONS (1)
  - SUBDURAL HAEMATOMA [None]
